FAERS Safety Report 7884600 (Version 3)
Quarter: 2020Q2

REPORT INFORMATION
  Report Type: Spontaneous
  Country: GB (occurrence: GB)
  Receive Date: 20110405
  Receipt Date: 20200415
  Transmission Date: 20200714
  Serious: Yes (Death, Other)
  Sender: FDA-Public Use
  Company Number: GB-SP-2011-02009

PATIENT
  Sex: Male

DRUGS (1)
  1. IMMUCYST [Suspect]
     Active Substance: BACILLUS CALMETTE-GUERIN SUBSTRAIN CONNAUGHT LIVE ANTIGEN
     Indication: BLADDER CANCER
     Dosage: 81 MG
     Route: 043
     Dates: start: 20080820

REACTIONS (4)
  - Pulmonary fibrosis [Fatal]
  - Respiratory failure [Fatal]
  - Pneumonitis [Not Recovered/Not Resolved]
  - Pulmonary granuloma [Fatal]
